FAERS Safety Report 8901349 (Version 4)
Quarter: 2012Q4

REPORT INFORMATION
  Report Type: Report from Study
  Country: US (occurrence: US)
  Receive Date: 20121109
  Receipt Date: 20121204
  Transmission Date: 20130627
  Serious: Yes (Hospitalization)
  Sender: FDA-Public Use
  Company Number: US-JNJFOC-20121103904

PATIENT
  Age: 14 Year
  Sex: Female
  Weight: 47.6 kg

DRUGS (15)
  1. REMICADE [Suspect]
     Indication: INFLAMMATORY BOWEL DISEASE
     Route: 042
     Dates: start: 20090207, end: 20101203
  2. ANTIBIOTICS [Concomitant]
     Indication: INFLAMMATORY BOWEL DISEASE
  3. PREVACID [Concomitant]
  4. ZOFRAN [Concomitant]
  5. HYDROCORTISONE [Concomitant]
  6. 5-ASA [Concomitant]
  7. FOLIC ACID [Concomitant]
  8. LIDOCAINE [Concomitant]
  9. AMITRIPTYLINE [Concomitant]
  10. FLUCONAZOLE [Concomitant]
  11. ADDERALL [Concomitant]
  12. HUMIRA [Concomitant]
     Indication: INFLAMMATORY BOWEL DISEASE
     Dates: start: 20101203, end: 20120911
  13. PREDNISONE [Concomitant]
  14. TACROLIMUS [Concomitant]
  15. METHOTREXATE [Concomitant]

REACTIONS (1)
  - Erythema nodosum [Recovered/Resolved]
